FAERS Safety Report 13394819 (Version 1)
Quarter: 2017Q2

REPORT INFORMATION
  Report Type: Spontaneous
  Country: US (occurrence: US)
  Receive Date: 20170403
  Receipt Date: 20170403
  Transmission Date: 20170830
  Serious: Yes (Other)
  Sender: FDA-Public Use
  Company Number: US-STRIDES ARCOLAB LIMITED-2016SP017413

PATIENT

DRUGS (1)
  1. IBUPROFEN. [Suspect]
     Active Substance: IBUPROFEN
     Indication: MIXED CONNECTIVE TISSUE DISEASE
     Dosage: UNK

REACTIONS (11)
  - Meningitis aseptic [Unknown]
  - Renal failure [Unknown]
  - Skin exfoliation [Unknown]
  - Rash [Unknown]
  - Alopecia [Unknown]
  - Conjunctivitis [Unknown]
  - Face oedema [Unknown]
  - Myalgia [Unknown]
  - Hypersensitivity [Unknown]
  - Arthralgia [Unknown]
  - Pruritus [Unknown]
